FAERS Safety Report 6029861-X (Version None)
Quarter: 2008Q4

REPORT INFORMATION
  Report Type: 
  Country: None (occurrence: None)
  Receive Date: 20081222
  Receipt Date: 20081002
  Transmission Date: 20090506
  Serious: No
  Sender: FDA-Public Use
  Company Number: US-WYE-H06248408

PATIENT
  Age: 66 Year
  Sex: Male
  Weight: 81.72 kg

DRUGS (6)
  1. PRISTIQ [Suspect]
     Dosage: 50 MG ONCE, ORAL
     Route: 048
     Dates: start: 20081001
  2. TESTOSTERONE [Concomitant]
  3. ZOLPIDEM [Concomitant]
  4. NAPROXEN [Concomitant]
  5. ALLOPURINOL [Concomitant]
  6. GABAPENTIN [Concomitant]

REACTIONS (3)
  - FEELING ABNORMAL [None]
  - TREMOR [None]
  - VERTIGO [None]
